FAERS Safety Report 16677744 (Version 1)
Quarter: 2019Q3

REPORT INFORMATION
  Report Type: Spontaneous
  Country: DE (occurrence: DE)
  Receive Date: 20190807
  Receipt Date: 20190807
  Transmission Date: 20191004
  Serious: No
  Sender: FDA-Public Use
  Company Number: DE-HORMOSAN PHARMA GMBH-2018-07559

PATIENT
  Sex: Female

DRUGS (1)
  1. LEVETIRACETAM-HORMOSAN 750 MG FILMTABLETTEN [Suspect]
     Active Substance: LEVETIRACETAM
     Indication: EPILEPSY
     Dosage: UNK
     Route: 065
     Dates: start: 201802

REACTIONS (7)
  - Nausea [Unknown]
  - Headache [Unknown]
  - Abdominal pain [Unknown]
  - Dizziness [Unknown]
  - Adverse drug reaction [Unknown]
  - Vision blurred [Unknown]
  - Memory impairment [Unknown]

NARRATIVE: CASE EVENT DATE: 201808
